FAERS Safety Report 6038198-4 (Version None)
Quarter: 2009Q1

REPORT INFORMATION
  Report Type: 
  Country: None (occurrence: None)
  Receive Date: 20090113
  Receipt Date: 20090113
  Transmission Date: 20090719
  Serious: Yes (Hospitalization, Other)
  Sender: FDA-Public Use
  Company Number: None

PATIENT
  Age: 19 Year
  Sex: Male
  Weight: 70.3075 kg

DRUGS (2)
  1. PROPECIA [Suspect]
     Indication: ANDROGENETIC ALOPECIA
     Dosage: 1 MG DAILY PO
     Route: 048
     Dates: start: 20051022, end: 20051105
  2. PROPECIA [Suspect]
     Indication: ANDROGENETIC ALOPECIA
     Dosage: 1 MG DAILY PO
     Route: 048
     Dates: start: 20070715, end: 20070723

REACTIONS (8)
  - ANXIETY DISORDER [None]
  - BLOOD TESTOSTERONE DECREASED [None]
  - ERECTILE DYSFUNCTION [None]
  - FATIGUE [None]
  - GENITAL DISORDER MALE [None]
  - GENITAL HYPOAESTHESIA [None]
  - LOSS OF LIBIDO [None]
  - MYALGIA [None]
